FAERS Safety Report 19415902 (Version 2)
Quarter: 2021Q2

REPORT INFORMATION
  Report Type: Spontaneous
  Country: DE (occurrence: DE)
  Receive Date: 20210615
  Receipt Date: 20210621
  Transmission Date: 20210717
  Serious: Yes (Hospitalization)
  Sender: FDA-Public Use
  Company Number: DE-TEVA-2021-DE-1921277

PATIENT
  Age: 78 Year
  Sex: Male

DRUGS (21)
  1. CYANOCOBALAMIN. [Concomitant]
     Active Substance: CYANOCOBALAMIN
     Dosage: 1 MILLIGRAM/MILLILITERS DAILY; 1?0?0?0
     Route: 058
  2. DEKRISTOL 20000 I.E. [Concomitant]
     Active Substance: CHOLECALCIFEROL
     Dosage: 1 DOSAGE FORMS DAILY; 2000 IU, 1?0?0?0
     Route: 048
  3. TORASEMID [Concomitant]
     Active Substance: TORSEMIDE
     Dosage: 5 MILLIGRAM DAILY; 1?0?0?0
     Route: 048
  4. TAMSULOSIN [Concomitant]
     Active Substance: TAMSULOSIN
     Dosage: .4 MILLIGRAM DAILY; 1?0?0?0
     Route: 048
  5. AMBROBENE 30MG [Concomitant]
     Dosage: 1 DOSAGE FORMS DAILY; 9 MG, 1?0?0?0, DROPS
     Route: 048
  6. QUETIAPIN [Concomitant]
     Active Substance: QUETIAPINE
     Dosage: 25 MG, IF NECESSARY
     Route: 048
  7. CANDESARTAN. [Concomitant]
     Active Substance: CANDESARTAN
     Dosage: 32 MILLIGRAM DAILY; 1?0?1?0
     Route: 048
  8. NIFEDIPIN [Concomitant]
     Active Substance: NIFEDIPINE
     Dosage: 20 DROPS, IF NECESSARY
     Route: 048
  9. APIXABAN [Suspect]
     Active Substance: APIXABAN
     Dosage: 10 MILLIGRAM DAILY; 1?0?1?0
     Route: 048
  10. ESOMEPRAZOL [Concomitant]
     Active Substance: ESOMEPRAZOLE
     Dosage: 40 MILLIGRAM DAILY; 1?0?0?0
     Route: 048
  11. METAMIZOL [Concomitant]
     Active Substance: METAMIZOLE SODIUM
     Dosage: 500 MG, IF NECESSARY
     Route: 048
  12. MOVICOL [Concomitant]
     Active Substance: POLYETHYLENE GLYCOL 3350\POTASSIUM CHLORIDE\SODIUM BICARBONATE\SODIUM CHLORIDE
     Dosage: 1 DOSAGE FORMS DAILY; 1?0?0?0
     Route: 048
  13. THYMIAN/PRIMEL [Concomitant]
     Dosage: 400 | 200 MG, IF NECESSARY 35GTT, DROPS
     Route: 048
  14. PREDNISOLON [Suspect]
     Active Substance: PREDNISOLONE
     Dosage: 5 MILLIGRAM DAILY; 1?0?0?0
     Route: 048
  15. ATORVASTATIN [Concomitant]
     Active Substance: ATORVASTATIN
     Dosage: 2 DOSAGE FORMS DAILY; 40 MG, 0?0?0?2
     Route: 048
  16. AMLODIPIN [Concomitant]
     Active Substance: AMLODIPINE BESYLATE
     Dosage: .5 DOSAGE FORMS DAILY; 5 MG, 0.5?0?0?0
     Route: 048
  17. DIMENHYDRINAT [Concomitant]
     Active Substance: DIMENHYDRINATE
     Dosage: 150 MG, IF NECESSARY
     Route: 054
  18. LORAZEPAM. [Concomitant]
     Active Substance: LORAZEPAM
     Dosage: 0.5 MG, IF NECESSARY
     Route: 048
  19. IVABRADIN [Concomitant]
     Active Substance: IVABRADINE
     Dosage: 5 MILLIGRAM DAILY; 1?0?1?0
     Route: 048
  20. OLODATEROL [Concomitant]
     Active Substance: OLODATEROL
     Dosage: 2 DOSAGE FORMS DAILY; 2.5 | 2.5 UG, 2?0?0?0, METERED DOSE AEROSOL
     Route: 048
  21. BERODUAL 0,05MG/0,02MG [Concomitant]
     Dosage: 1 STROKE, IF NECESSARY, METERED DOSE INHALER
     Route: 048

REACTIONS (4)
  - Respiration abnormal [Unknown]
  - Haematemesis [Unknown]
  - General physical health deterioration [Unknown]
  - Haematochezia [Unknown]
